FAERS Safety Report 21263794 (Version 1)
Quarter: 2022Q3

REPORT INFORMATION
  Report Type: Spontaneous
  Country: CA (occurrence: None)
  Receive Date: 20220829
  Receipt Date: 20220829
  Transmission Date: 20221026
  Serious: Yes (Other)
  Sender: FDA-Public Use
  Company Number: CA-ROCHE-3167452

PATIENT
  Age: 53 Year
  Sex: Female

DRUGS (9)
  1. CAPECITABINE [Suspect]
     Active Substance: CAPECITABINE
     Indication: Metastases to bone
     Route: 048
  2. CAPECITABINE [Suspect]
     Active Substance: CAPECITABINE
     Indication: Intraductal proliferative breast lesion
  3. ELIGARD [Suspect]
     Active Substance: LEUPROLIDE ACETATE
     Indication: Artificial menopause
     Route: 065
  4. IBRANCE [Suspect]
     Active Substance: PALBOCICLIB
     Indication: Metastases to bone
     Route: 065
  5. IBRANCE [Suspect]
     Active Substance: PALBOCICLIB
     Indication: Intraductal proliferative breast lesion
  6. LETROZOLE [Suspect]
     Active Substance: LETROZOLE
     Indication: Metastases to bone
     Route: 065
  7. LETROZOLE [Suspect]
     Active Substance: LETROZOLE
     Indication: Intraductal proliferative breast lesion
  8. PACLITAXEL [Suspect]
     Active Substance: PACLITAXEL
     Indication: Triple negative breast cancer
     Route: 042
  9. ZOLEDRONIC ACID [Suspect]
     Active Substance: ZOLEDRONIC ACID
     Indication: Metastases to bone
     Route: 065

REACTIONS (4)
  - Breast cancer metastatic [Unknown]
  - Neuroendocrine breast tumour [Unknown]
  - Off label use [Unknown]
  - Superior vena cava syndrome [Unknown]
